FAERS Safety Report 8325685-9 (Version None)
Quarter: 2012Q2

REPORT INFORMATION
  Report Type: 
  Country: None (occurrence: None)
  Receive Date: 20120501
  Receipt Date: 20120501
  Transmission Date: 20120825
  Serious: Yes (Life-Threatening)
  Sender: FDA-Public Use
  Company Number: None

PATIENT
  Age: 39 Year
  Sex: Female
  Weight: 61.234 kg

DRUGS (1)
  1. OFLOXACIN [Suspect]
     Indication: CONJUNCTIVITIS INFECTIVE
     Dosage: 2 DROPS EACH EYE
     Route: 047
     Dates: start: 20120429, end: 20120429

REACTIONS (3)
  - HYPOAESTHESIA ORAL [None]
  - COUGH [None]
  - SWOLLEN TONGUE [None]
